FAERS Safety Report 8235733-2 (Version None)
Quarter: 2012Q1

REPORT INFORMATION
  Report Type: 
  Country: None (occurrence: None)
  Receive Date: 20120326
  Receipt Date: 20120316
  Transmission Date: 20120608
  Serious: Yes (Hospitalization, Other)
  Sender: FDA-Public Use
  Company Number: PHFR2012GB001684

PATIENT
  Sex: Male

DRUGS (2)
  1. CLOZARIL [Suspect]
     Indication: SCHIZOPHRENIA
     Dosage: UNK
     Route: 048
     Dates: start: 20010701, end: 20120228
  2. CLOZARIL [Suspect]
     Route: 048
     Dates: start: 20120309

REACTIONS (5)
  - DEHYDRATION [None]
  - VOMITING [None]
  - RED BLOOD CELL SEDIMENTATION RATE INCREASED [None]
  - HAEMOGLOBIN DECREASED [None]
  - DIARRHOEA [None]
